FAERS Safety Report 7683111-7 (Version None)
Quarter: 2011Q3

REPORT INFORMATION
  Report Type: 
  Country: None (occurrence: None)
  Receive Date: 20110815
  Receipt Date: 20110810
  Transmission Date: 20111222
  Serious: Yes (Other)
  Sender: FDA-Public Use
  Company Number: US-PFIZER INC-2011184051

PATIENT
  Sex: Male

DRUGS (3)
  1. LYRICA [Suspect]
     Dosage: 100 MG, 3X/DAY
     Dates: end: 20110810
  2. LYRICA [Suspect]
     Indication: BACK PAIN
     Dosage: 50 MG, 3X/DAY
  3. LYRICA [Suspect]
     Indication: GROIN PAIN
     Dosage: 75 MG, 3X/DAY

REACTIONS (5)
  - WEIGHT INCREASED [None]
  - SPINAL LAMINECTOMY [None]
  - EJACULATION DISORDER [None]
  - SOMNOLENCE [None]
  - SKIN LESION [None]
